FAERS Safety Report 23990474 (Version 2)
Quarter: 2024Q2

REPORT INFORMATION
  Report Type: Report from Study
  Country: US (occurrence: US)
  Receive Date: 20240619
  Receipt Date: 20240624
  Transmission Date: 20240716
  Serious: No
  Sender: FDA-Public Use
  Company Number: US-IPSEN Group, Research and Development-2023-28137

PATIENT
  Sex: Female

DRUGS (3)
  1. SOHONOS [Suspect]
     Active Substance: PALOVAROTENE
     Indication: Fibrodysplasia ossificans progressiva
     Dosage: 7.5MG (2.5MG X 3) FOR 4.5 WEEKS
     Route: 048
     Dates: start: 202312
  2. SOHONOS [Suspect]
     Active Substance: PALOVAROTENE
     Dosage: 7.5MG 1 D
     Route: 048
     Dates: start: 20240227
  3. SOHONOS [Suspect]
     Active Substance: PALOVAROTENE
     Dosage: FLARE DOSE
     Route: 065
     Dates: start: 20240529

REACTIONS (2)
  - Condition aggravated [Recovering/Resolving]
  - Adverse drug reaction [Unknown]
